FAERS Safety Report 7283784-7 (Version None)
Quarter: 2011Q1

REPORT INFORMATION
  Report Type: 
  Country: None (occurrence: None)
  Receive Date: 20110209
  Receipt Date: 20110203
  Transmission Date: 20110831
  Serious: Yes (Other)
  Sender: FDA-Public Use
  Company Number: GB-MERCK-1101GBR00109

PATIENT
  Sex: Male

DRUGS (4)
  1. ZOCOR [Suspect]
     Route: 048
  2. AMIODARONE [Suspect]
     Route: 065
  3. ZOCOR [Suspect]
     Route: 048
  4. SITAGLIPTIN PHOSPHATE [Suspect]
     Route: 065

REACTIONS (3)
  - RENAL FAILURE [None]
  - DRUG INTERACTION [None]
  - RHABDOMYOLYSIS [None]
